FAERS Safety Report 14859184 (Version 6)
Quarter: 2019Q1

REPORT INFORMATION
  Report Type: Report from Study
  Country: DE (occurrence: DE)
  Receive Date: 20180508
  Receipt Date: 20190211
  Transmission Date: 20190417
  Serious: Yes (Hospitalization, Other)
  Sender: FDA-Public Use
  Company Number: DE-ROCHE-301150

PATIENT
  Age: 79 Year
  Sex: Female
  Weight: 67 kg

DRUGS (29)
  1. ASPIRIN. [Suspect]
     Active Substance: ASPIRIN
     Indication: CORONARY ARTERY DISEASE
     Route: 048
     Dates: start: 20000130, end: 20000227
  2. PHENHYDAN [Suspect]
     Active Substance: PHENYTOIN
     Indication: SEIZURE
     Route: 042
     Dates: start: 20000225, end: 20000226
  3. EUSAPRIM [Suspect]
     Active Substance: SULFAMETHOXAZOLE\TRIMETHOPRIM
     Indication: URINARY TRACT INFECTION
  4. CLONAZEPAM. [Suspect]
     Active Substance: CLONAZEPAM
     Indication: SEIZURE
     Route: 042
     Dates: start: 20000224, end: 20000224
  5. TEGRETAL [Suspect]
     Active Substance: CARBAMAZEPINE
     Indication: SEIZURE
     Route: 048
     Dates: start: 20000125, end: 20000224
  6. PHENHYDAN [Suspect]
     Active Substance: PHENYTOIN
     Route: 048
  7. ISOSORBIDDINITRAT [Suspect]
     Active Substance: ISOSORBIDE DINITRATE
     Indication: CORONARY ARTERY DISEASE
     Route: 048
     Dates: start: 20000130, end: 20000218
  8. DIAZEPAM. [Suspect]
     Active Substance: DIAZEPAM
     Indication: SEIZURE
     Route: 042
     Dates: start: 20000218, end: 20000225
  9. LASIX [Suspect]
     Active Substance: FUROSEMIDE
     Indication: CORONARY ARTERY DISEASE
     Route: 048
     Dates: start: 20000225, end: 20000227
  10. TRAMAL [Suspect]
     Active Substance: TRAMADOL
     Dosage: DOSE UNIT: 20 DROP
     Route: 048
  11. RANITIC [Suspect]
     Active Substance: RANITIDINE HYDROCHLORIDE
     Indication: PROPHYLAXIS
  12. PHENHYDAN [Suspect]
     Active Substance: PHENYTOIN
     Indication: SEIZURE
     Dosage: .
     Route: 048
     Dates: start: 20000226, end: 20000227
  13. AMLODIPIN [Suspect]
     Active Substance: AMLODIPINE BESYLATE
     Indication: CORONARY ARTERY DISEASE
  14. NORVASC [Concomitant]
     Active Substance: AMLODIPINE BESYLATE
     Indication: CORONARY ARTERY DISEASE
     Route: 048
     Dates: start: 20000130, end: 20000227
  15. RANITIC [Suspect]
     Active Substance: RANITIDINE HYDROCHLORIDE
     Indication: GASTRIC ULCER
     Route: 048
     Dates: start: 20000218, end: 20000224
  16. TRAMAL [Suspect]
     Active Substance: TRAMADOL
     Indication: PAIN
     Dosage: STAT DOSES. FORM STRENGTH=20 UNIT
     Route: 048
     Dates: start: 20000219, end: 20000223
  17. FURORESE [Suspect]
     Active Substance: FUROSEMIDE
     Indication: OEDEMA
     Route: 048
     Dates: start: 20000218, end: 20000224
  18. FURORESE [Suspect]
     Active Substance: FUROSEMIDE
     Route: 048
     Dates: start: 20000130, end: 20000218
  19. EUSAPRIM [Suspect]
     Active Substance: SULFAMETHOXAZOLE\TRIMETHOPRIM
     Indication: CYSTITIS
     Route: 048
     Dates: start: 20000226, end: 20000227
  20. AMLODIPIN [Suspect]
     Active Substance: AMLODIPINE BESYLATE
     Indication: CORONARY ARTERY DISEASE
     Route: 048
     Dates: start: 20000130, end: 20000220
  21. LUMINALE [Suspect]
     Active Substance: PHENOBARBITAL
     Indication: SEIZURE
     Route: 030
  22. CORANGIN [Suspect]
     Active Substance: ISOSORBIDE MONONITRATE
     Indication: CORONARY ARTERY DISEASE
     Route: 048
     Dates: start: 20000218, end: 20000224
  23. TRAMAL [Suspect]
     Active Substance: TRAMADOL
     Indication: PAIN
     Dosage: DOSE UNIT: 20 DROP  EAR EYE NOSE DROP SOLUTION
     Route: 048
  24. FURSEMID [Suspect]
     Active Substance: FUROSEMIDE
     Indication: OEDEMA
     Route: 065
     Dates: end: 20000218
  25. ZANTAC [Suspect]
     Active Substance: RANITIDINE HYDROCHLORIDE
     Indication: GASTRIC ULCER
     Route: 048
     Dates: start: 20000225, end: 20000227
  26. PHENHYDAN [Suspect]
     Active Substance: PHENYTOIN
     Route: 042
  27. ISMO [Suspect]
     Active Substance: ISOSORBIDE MONONITRATE
     Indication: CORONARY ARTERY DISEASE
     Route: 048
     Dates: start: 20000225, end: 20000227
  28. PARACETAMOL [Concomitant]
     Active Substance: ACETAMINOPHEN
     Indication: PAIN
     Route: 054
     Dates: start: 20000226, end: 20000226
  29. BEN-U-RON [Concomitant]
     Active Substance: ACETAMINOPHEN
     Indication: PAIN
     Route: 054
     Dates: start: 20000226, end: 20000226

REACTIONS (14)
  - Lip erosion [Recovered/Resolved]
  - Rash macular [Recovered/Resolved]
  - Eyelid oedema [Recovered/Resolved]
  - Erythema [Recovered/Resolved]
  - Blister [Recovered/Resolved]
  - Mouth ulceration [Recovered/Resolved]
  - Pruritus generalised [Recovered/Resolved]
  - Genital erosion [Recovered/Resolved]
  - Stevens-Johnson syndrome [Recovering/Resolving]
  - Pruritus [Recovered/Resolved]
  - Conjunctivitis [Recovered/Resolved]
  - Oral mucosa erosion [Recovered/Resolved]
  - Rash erythematous [Recovered/Resolved]
  - Rash vesicular [Recovered/Resolved]

NARRATIVE: CASE EVENT DATE: 20000227
